FAERS Safety Report 5495349-8 (Version None)
Quarter: 2007Q4

REPORT INFORMATION
  Report Type: 
  Country: None (occurrence: None)
  Receive Date: 20071024
  Receipt Date: 20071017
  Transmission Date: 20080405
  Serious: Yes (Life-Threatening, Hospitalization, Other)
  Sender: FDA-Public Use
  Company Number: US-MERCK-0707USA02309

PATIENT
  Age: 51 Year
  Sex: Female

DRUGS (6)
  1. FOSAMAX [Suspect]
     Indication: OSTEOPENIA
     Route: 048
     Dates: start: 19940101, end: 20040101
  2. NITROGLYCERIN [Concomitant]
     Indication: ARTERIOSPASM CORONARY
     Route: 060
  3. ASCORBIC ACID [Concomitant]
     Route: 065
  4. VITAMIN E [Concomitant]
     Route: 065
  5. CALCIUM (UNSPECIFIED) [Concomitant]
     Route: 065
  6. MINERALS (UNSPECIFIED) AND VITAMINS (UNSPECIFIED) [Concomitant]
     Route: 065

REACTIONS (18)
  - ARTHRALGIA [None]
  - BLOOD CHOLESTEROL INCREASED [None]
  - BREAST DISORDER [None]
  - DEPRESSION [None]
  - HYPERTENSION [None]
  - HYPOAESTHESIA [None]
  - ONYCHOMYCOSIS [None]
  - ORAL HERPES [None]
  - OSTEOMYELITIS [None]
  - OSTEONECROSIS [None]
  - PAIN [None]
  - PAIN IN EXTREMITY [None]
  - RENAL ARTERY STENOSIS [None]
  - RENAL CYST [None]
  - SEPSIS [None]
  - SKIN LESION [None]
  - TOOTH ABSCESS [None]
  - UPPER LIMB FRACTURE [None]
